FAERS Safety Report 5267214-2 (Version None)
Quarter: 2007Q1

REPORT INFORMATION
  Report Type: 
  Country: None (occurrence: None)
  Receive Date: 20070316
  Receipt Date: 20070308
  Transmission Date: 20070707
  Serious: Yes (Other)
  Sender: FDA-Public Use
  Company Number: AU-GLAXOSMITHKLINE-B0462064A

PATIENT
  Age: 32 Year
  Sex: Female

DRUGS (2)
  1. CARTIA XT [Suspect]
     Route: 048
     Dates: end: 20070202
  2. FOLIC ACID [Concomitant]
     Indication: PREGNANCY

REACTIONS (3)
  - ABORTION SPONTANEOUS [None]
  - HAEMORRHAGE [None]
  - ILL-DEFINED DISORDER [None]
